FAERS Safety Report 5309678-1 (Version None)
Quarter: 2007Q2

REPORT INFORMATION
  Report Type: 
  Country: None (occurrence: None)
  Receive Date: 20070427
  Receipt Date: 20061114
  Transmission Date: 20071010
  Serious: No
  Sender: FDA-Public Use
  Company Number: US-GLAXOSMITHKLINE-A0627475A

PATIENT
  Age: 53 Year
  Sex: Female

DRUGS (5)
  1. DEXEDRINE [Suspect]
     Route: 048
     Dates: start: 20060101, end: 20061101
  2. DEXTROAMPHETAMINE SULFATE [Suspect]
     Dosage: 15MG THREE TIMES PER DAY
     Route: 048
     Dates: start: 20060101, end: 20060101
  3. METHYLPHENIDATE HCL [Suspect]
     Route: 048
     Dates: start: 20061101
  4. ANTIDEPRESSANT [Concomitant]
  5. AMBIEN [Concomitant]

REACTIONS (1)
  - DRUG INEFFECTIVE [None]
